FAERS Safety Report 22033017 (Version 1)
Quarter: 2023Q1

REPORT INFORMATION
  Report Type: Spontaneous
  Country: JP (occurrence: None)
  Receive Date: 20230224
  Receipt Date: 20230224
  Transmission Date: 20230418
  Serious: Yes (Other)
  Sender: FDA-Public Use
  Company Number: JP-Orion Corporation ORION PHARMA-ENT 2023-0007

PATIENT
  Sex: Female

DRUGS (1)
  1. COMTAN [Suspect]
     Active Substance: ENTACAPONE
     Indication: Parkinson^s disease
     Route: 048

REACTIONS (1)
  - Parkinson^s disease [Unknown]

NARRATIVE: CASE EVENT DATE: 20230208
